FAERS Safety Report 11791047 (Version 1)
Quarter: 2015Q4

REPORT INFORMATION
  Report Type: Spontaneous
  Country: US (occurrence: US)
  Receive Date: 20151201
  Receipt Date: 20151201
  Transmission Date: 20160305
  Serious: No
  Sender: FDA-Public Use
  Company Number: US-SA-2015SA140070

PATIENT
  Age: 67 Year
  Sex: Female

DRUGS (6)
  1. ETRAVIRINE [Concomitant]
     Active Substance: ETRAVIRINE
  2. REYATAZ [Concomitant]
     Active Substance: ATAZANAVIR SULFATE
  3. RENVELA [Suspect]
     Active Substance: SEVELAMER CARBONATE
     Indication: CHRONIC KIDNEY DISEASE
     Route: 065
  4. ZIAGEN [Concomitant]
     Active Substance: ABACAVIR SULFATE
  5. RENVELA [Suspect]
     Active Substance: SEVELAMER CARBONATE
     Indication: CHRONIC KIDNEY DISEASE
     Route: 065
     Dates: start: 201506, end: 20150910
  6. NORVIR [Concomitant]
     Active Substance: RITONAVIR

REACTIONS (3)
  - Drug intolerance [Not Recovered/Not Resolved]
  - Paraesthesia [Not Recovered/Not Resolved]
  - Hypoaesthesia [Not Recovered/Not Resolved]

NARRATIVE: CASE EVENT DATE: 201506
